FAERS Safety Report 8613261-X (Version None)
Quarter: 2012Q3

REPORT INFORMATION
  Report Type: 
  Country: None (occurrence: None)
  Receive Date: 20120822
  Receipt Date: 20120718
  Transmission Date: 20120928
  Serious: No
  Sender: FDA-Public Use
  Company Number: US-009507513-1207USA009229

PATIENT

DRUGS (9)
  1. PEG-INTRON [Suspect]
  2. CARAFATE [Concomitant]
  3. ONDANSETRON [Concomitant]
  4. RIBAVIRIN [Suspect]
  5. LORAZEPAM [Concomitant]
  6. ACIPHEX [Concomitant]
  7. CYANOCOBALAMIN [Concomitant]
  8. VICTRELIS [Suspect]
     Dosage: 800 MG, TID EVERY 7-9 HOURS
     Dates: start: 20120201
  9. ADVIL [Concomitant]

REACTIONS (4)
  - OESOPHAGEAL PAIN [None]
  - PAIN [None]
  - NAUSEA [None]
  - RASH [None]
